FAERS Safety Report 24148161 (Version 1)
Quarter: 2024Q3

REPORT INFORMATION
  Report Type: Spontaneous
  Country: US (occurrence: None)
  Receive Date: 20240728
  Receipt Date: 20240728
  Transmission Date: 20241017
  Serious: Yes (Disabling)
  Sender: Public
  Company Number: None

PATIENT
  Age: 68 Year
  Sex: Female
  Weight: 45.27 kg

DRUGS (9)
  1. MOUNJARO [Suspect]
     Active Substance: TIRZEPATIDE
     Indication: Diabetes mellitus
     Dosage: OTHER QUANTITY : 1 INJECTION(S);?OTHER FREQUENCY : WEEKLY;?OTHER ROUTE : INJECTION;?
     Route: 050
     Dates: start: 20240715, end: 20240723
  2. SERTRALINE [Concomitant]
     Active Substance: SERTRALINE HYDROCHLORIDE
  3. ATORVASTATIN [Concomitant]
     Active Substance: ATORVASTATIN
  4. MONTELUKAST [Concomitant]
     Active Substance: MONTELUKAST SODIUM
  5. BRESTRI [Concomitant]
  6. ALBUTEROL INHALOR [Concomitant]
  7. VITAMIN D3 [Concomitant]
     Active Substance: CHOLECALCIFEROL
  8. ANTOLINE [Concomitant]
  9. ASPIRIN [Concomitant]
     Active Substance: ASPIRIN

REACTIONS (3)
  - Underweight [None]
  - Dyspepsia [None]
  - Vomiting [None]

NARRATIVE: CASE EVENT DATE: 20240715
